FAERS Safety Report 13758284 (Version 2)
Quarter: 2017Q3

REPORT INFORMATION
  Report Type: Spontaneous
  Country: US (occurrence: US)
  Receive Date: 20170717
  Receipt Date: 20170901
  Transmission Date: 20171127
  Serious: No
  Sender: FDA-Public Use
  Company Number: US-PFIZER INC-2017305722

PATIENT
  Age: 72 Year
  Sex: Female
  Weight: 83.91 kg

DRUGS (2)
  1. EFFEXOR [Suspect]
     Active Substance: VENLAFAXINE HYDROCHLORIDE
     Dosage: UNK MG, DAILY (37.5-150 MG)
     Route: 048
     Dates: start: 2008, end: 2009
  2. EFFEXOR [Suspect]
     Active Substance: VENLAFAXINE HYDROCHLORIDE
     Indication: DEPRESSION
     Dosage: UNK
     Dates: start: 2002, end: 2008

REACTIONS (6)
  - Depression [Unknown]
  - Malaise [Unknown]
  - Tardive dyskinesia [Not Recovered/Not Resolved]
  - Anxiety [Unknown]
  - Influenza like illness [Unknown]
  - Withdrawal syndrome [Unknown]
